FAERS Safety Report 6164374-6 (Version None)
Quarter: 2009Q2

REPORT INFORMATION
  Report Type: 
  Country: None (occurrence: None)
  Receive Date: 20090422
  Receipt Date: 20090415
  Transmission Date: 20091009
  Serious: Yes (Death, Other)
  Sender: FDA-Public Use
  Company Number: US-AMGEN-US332150

PATIENT
  Sex: Male
  Weight: 93.5 kg

DRUGS (4)
  1. NPLATE [Suspect]
     Indication: IDIOPATHIC THROMBOCYTOPENIC PURPURA
     Route: 065
     Dates: start: 20081219, end: 20090107
  2. COUMADIN [Concomitant]
     Route: 065
  3. CORTICOSTEROIDS [Concomitant]
  4. RITUXIMAB [Concomitant]

REACTIONS (3)
  - CARDIAC FAILURE CONGESTIVE [None]
  - HAEMORRHAGIC STROKE [None]
  - THROMBOCYTOPENIA [None]
